FAERS Safety Report 7817365-0 (Version None)
Quarter: 2011Q4

REPORT INFORMATION
  Report Type: 
  Country: None (occurrence: None)
  Receive Date: 20111017
  Receipt Date: 20111004
  Transmission Date: 20120403
  Serious: Yes (Hospitalization)
  Sender: FDA-Public Use
  Company Number: NZ-RB-028652-11

PATIENT

DRUGS (1)
  1. MUCINEX [Suspect]
     Route: 048
     Dates: start: 20111001

REACTIONS (1)
  - CHEST PAIN [None]
